FAERS Safety Report 9692888 (Version 1)
Quarter: 2013Q4

REPORT INFORMATION
  Report Type: Spontaneous
  Country: US (occurrence: None)
  Receive Date: 20131115
  Receipt Date: 20131115
  Transmission Date: 20140711
  Serious: No
  Sender: FDA-Public Use
  Company Number: None

PATIENT
  Age: 65 Year
  Sex: Female
  Weight: 57.61 kg

DRUGS (13)
  1. ATENOLOL [Suspect]
  2. BYSTOLIC [Suspect]
  3. BENICAR [Suspect]
  4. CARVEDILOL [Suspect]
  5. DIOVAN [Suspect]
  6. LISINOPRIL [Suspect]
  7. LOSARTEN [Suspect]
  8. METROPROLOL [Suspect]
  9. MICARDIS [Suspect]
  10. NORVASC [Suspect]
  11. TRIAMT\HCTZ [Suspect]
  12. TEKTURNA [Suspect]
  13. HYDROCHLOROT [Suspect]

REACTIONS (3)
  - Dizziness [None]
  - Pruritus [None]
  - Feeling hot [None]
